FAERS Safety Report 19146216 (Version 1)
Quarter: 2021Q2

REPORT INFORMATION
  Report Type: Spontaneous
  Country: US (occurrence: US)
  Receive Date: 20210416
  Receipt Date: 20210416
  Transmission Date: 20210717
  Serious: No
  Sender: FDA-Public Use
  Company Number: US-GLAXOSMITHKLINE-USCH2021018757

PATIENT
  Age: 57 Year
  Sex: Male

DRUGS (1)
  1. ABREVA [Suspect]
     Active Substance: DOCOSANOL
     Indication: ORAL HERPES
     Dosage: UNK
     Dates: end: 20210405

REACTIONS (3)
  - Lip dry [Recovering/Resolving]
  - Oral discomfort [Recovering/Resolving]
  - Condition aggravated [Recovering/Resolving]
